FAERS Safety Report 19639181 (Version 1)
Quarter: 2021Q3

REPORT INFORMATION
  Report Type: Spontaneous
  Country: SG (occurrence: SG)
  Receive Date: 20210729
  Receipt Date: 20210729
  Transmission Date: 20211014
  Serious: Yes (Other)
  Sender: FDA-Public Use
  Company Number: SG-ALLERGAN-2126867US

PATIENT
  Sex: Male

DRUGS (1)
  1. FOSFOMYCIN TROMETHAMINE ? BP [Suspect]
     Active Substance: FOSFOMYCIN TROMETHAMINE
     Indication: PRODUCT USED FOR UNKNOWN INDICATION
     Dosage: 3 G, QD
     Route: 048
     Dates: start: 20210705

REACTIONS (3)
  - Rash maculo-papular [Unknown]
  - Anaphylactoid reaction [Unknown]
  - Flushing [Unknown]

NARRATIVE: CASE EVENT DATE: 20210705
